FAERS Safety Report 5831486-3 (Version None)
Quarter: 2008Q3

REPORT INFORMATION
  Report Type: 
  Country: None (occurrence: None)
  Receive Date: 20080801
  Receipt Date: 20080718
  Transmission Date: 20090109
  Serious: Yes (Other)
  Sender: FDA-Public Use
  Company Number: BE-GENENTECH-265137

PATIENT
  Age: 60 Year
  Sex: Female

DRUGS (6)
  1. AVASTIN [Suspect]
     Indication: COLORECTAL CANCER
     Dosage: 5 MG/KG, UNK
     Dates: start: 20050101, end: 20050101
  2. FLUOROURACIL [Concomitant]
     Indication: COLORECTAL CANCER
     Dosage: UNK
     Dates: start: 20050101, end: 20050101
  3. FOLINIC ACID [Concomitant]
     Indication: COLORECTAL CANCER
     Dosage: UNK
     Dates: start: 20050101, end: 20050101
  4. OXALIPLATIN [Concomitant]
     Indication: COLORECTAL CANCER
     Dosage: UNK
     Dates: start: 20050101, end: 20050101
  5. EMCONCOR [Concomitant]
     Indication: DRUG USE FOR UNKNOWN INDICATION
  6. ASPIRIN [Concomitant]
     Indication: DRUG USE FOR UNKNOWN INDICATION

REACTIONS (4)
  - ANGINA PECTORIS [None]
  - CYANOSIS [None]
  - OEDEMA PERIPHERAL [None]
  - TINNITUS [None]
